FAERS Safety Report 7434390-2 (Version None)
Quarter: 2011Q2

REPORT INFORMATION
  Report Type: 
  Country: None (occurrence: None)
  Receive Date: 20110425
  Receipt Date: 20110413
  Transmission Date: 20111010
  Serious: Yes (Other)
  Sender: FDA-Public Use
  Company Number: PHEH2010US03474

PATIENT
  Sex: Female

DRUGS (14)
  1. ASPIRIN [Concomitant]
  2. MAALOX                                  /NET/ [Concomitant]
  3. ZELNORM [Suspect]
     Indication: GASTRIC DISORDER
     Dosage: 6 MG, BID
     Dates: end: 20070411
  4. CYCLOBENZAPRINE [Concomitant]
  5. TENORETIC [Concomitant]
  6. VASOTEC [Concomitant]
  7. PREVACID [Concomitant]
  8. ZANTAC [Concomitant]
  9. NORVASC [Concomitant]
  10. CRESTOR [Concomitant]
  11. DIOVAN [Concomitant]
  12. LOTREL [Concomitant]
  13. ATENOLOL [Concomitant]
  14. IMDUR [Concomitant]

REACTIONS (37)
  - INJURY [None]
  - COUGH [None]
  - PALPITATIONS [None]
  - POLLAKIURIA [None]
  - REFLUX OESOPHAGITIS [None]
  - CARDIAC MURMUR [None]
  - HYPERTENSION [None]
  - DYSPNOEA EXERTIONAL [None]
  - ORTHOPNOEA [None]
  - INITIAL INSOMNIA [None]
  - NIGHT SWEATS [None]
  - VOMITING [None]
  - HEADACHE [None]
  - PARAESTHESIA [None]
  - SINUSITIS [None]
  - DIZZINESS [None]
  - LIGAMENT RUPTURE [None]
  - GASTROOESOPHAGEAL REFLUX DISEASE [None]
  - BRONCHITIS [None]
  - CHEST PAIN [None]
  - CARDIAC FLUTTER [None]
  - DYSPEPSIA [None]
  - SINUS CONGESTION [None]
  - ABDOMINAL DISCOMFORT [None]
  - HYPERTENSIVE HEART DISEASE [None]
  - ANGINA PECTORIS [None]
  - MITRAL VALVE INCOMPETENCE [None]
  - TRICUSPID VALVE INCOMPETENCE [None]
  - COSTOCHONDRITIS [None]
  - MUSCULOSKELETAL PAIN [None]
  - LEFT VENTRICULAR HYPERTROPHY [None]
  - PULMONARY VALVE INCOMPETENCE [None]
  - FATIGUE [None]
  - MUSCLE SPASMS [None]
  - CHEST DISCOMFORT [None]
  - ABDOMINAL PAIN UPPER [None]
  - PAIN IN EXTREMITY [None]
